FAERS Safety Report 9631071 (Version 1)
Quarter: 2013Q4

REPORT INFORMATION
  Report Type: Spontaneous
  Country: TN (occurrence: TN)
  Receive Date: 20131018
  Receipt Date: 20131018
  Transmission Date: 20140711
  Serious: Yes (Other)
  Sender: FDA-Public Use
  Company Number: TN-MYLANLABS-2013S1022631

PATIENT
  Age: 58 Year
  Sex: Female

DRUGS (2)
  1. LITHIUM [Suspect]
     Indication: BIPOLAR DISORDER
     Dosage: 700 MG/DAY
     Route: 065
  2. LEVOMEPROMAZINE [Suspect]
     Indication: BIPOLAR DISORDER
     Dosage: 50 MG/DAY
     Route: 065

REACTIONS (5)
  - Nasal disorder [Unknown]
  - Bronchial disorder [Unknown]
  - Cerebellar syndrome [Not Recovered/Not Resolved]
  - Pyramidal tract syndrome [Unknown]
  - Extrapyramidal disorder [Unknown]
